FAERS Safety Report 5962134-X (Version None)
Quarter: 2008Q4

REPORT INFORMATION
  Report Type: 
  Country: None (occurrence: None)
  Receive Date: 20081121
  Receipt Date: 20081113
  Transmission Date: 20090506
  Serious: Yes (Other)
  Sender: FDA-Public Use
  Company Number: US-JNJCH-2008054670

PATIENT
  Age: 47 Year
  Sex: Male
  Weight: 108.9 kg

DRUGS (1)
  1. ROGAINE [Suspect]
     Indication: ALOPECIA
     Dosage: TEXT:2 ML ONCE DAILY
     Route: 061

REACTIONS (1)
  - CARDIAC DISORDER [None]
